FAERS Safety Report 9391542 (Version 1)
Quarter: 2013Q3

REPORT INFORMATION
  Report Type: Report from Study
  Country: JP (occurrence: JP)
  Receive Date: 20130709
  Receipt Date: 20130709
  Transmission Date: 20140515
  Serious: Yes (Death, Other)
  Sender: FDA-Public Use
  Company Number: JP-GENZYME-THYM-1003892

PATIENT
  Age: 24 Year
  Sex: Female
  Weight: 87 kg

DRUGS (11)
  1. THYMOGLOBULIN [Suspect]
     Indication: BONE MARROW CONDITIONING REGIMEN
     Dosage: 180 MG, QD
     Route: 065
     Dates: start: 20111124, end: 20111124
  2. PROGRAF [Concomitant]
     Indication: PROPHYLAXIS
     Dosage: UNK
     Route: 065
     Dates: start: 20111124, end: 20111211
  3. BAKTAR [Concomitant]
     Indication: PROPHYLAXIS
     Dosage: UNK
     Route: 065
     Dates: start: 20110706, end: 20111206
  4. ITRIZOLE [Concomitant]
     Indication: PROPHYLAXIS
     Dosage: UNK
     Route: 065
     Dates: start: 20110706, end: 20111206
  5. VANCOMYCIN [Concomitant]
     Indication: PROPHYLAXIS
     Dosage: UNK
     Route: 065
     Dates: start: 20111124, end: 20111209
  6. ACICLOVIN [Concomitant]
     Indication: PROPHYLAXIS
     Dosage: UNK
     Route: 065
     Dates: start: 20111119, end: 20111209
  7. CHLOR-TRIMETON [Concomitant]
     Indication: PROPHYLAXIS
     Dosage: UNK
     Route: 065
     Dates: start: 20111124, end: 20111124
  8. SOL-MELCORT [Concomitant]
     Indication: PROPHYLAXIS
     Dosage: UNK
     Route: 065
     Dates: start: 20111124, end: 20111213
  9. MEROPENEM [Concomitant]
     Indication: PROPHYLAXIS
     Dosage: UNK
     Route: 065
     Dates: start: 20111125, end: 20111208
  10. MORPHINE [Concomitant]
     Indication: ACUTE LYMPHOCYTIC LEUKAEMIA
     Dosage: UNK
     Route: 065
     Dates: start: 20111125, end: 20111129
  11. MORPHINE [Concomitant]
     Indication: MENTAL DISABILITY

REACTIONS (6)
  - Respiratory arrest [Unknown]
  - Glossoptosis [Unknown]
  - Acute lymphocytic leukaemia [Fatal]
  - Postresuscitation encephalopathy [Not Recovered/Not Resolved]
  - Asphyxia [Recovered/Resolved]
  - Renal impairment [Not Recovered/Not Resolved]
